FAERS Safety Report 23090813 (Version 3)
Quarter: 2023Q4

REPORT INFORMATION
  Report Type: Spontaneous
  Country: US (occurrence: US)
  Receive Date: 20231020
  Receipt Date: 20231219
  Transmission Date: 20240109
  Serious: No
  Sender: FDA-Public Use
  Company Number: US-PFIZER INC-PV202300172975

PATIENT
  Age: 51 Year
  Sex: Female

DRUGS (2)
  1. TRAZIMERA [Suspect]
     Active Substance: TRASTUZUMAB-QYYP
     Indication: Breast cancer female
     Dosage: UNK
  2. TRAZIMERA [Suspect]
     Active Substance: TRASTUZUMAB-QYYP
     Indication: Arthralgia

REACTIONS (5)
  - Joint space narrowing [Unknown]
  - Exostosis [Unknown]
  - Osteoarthritis [Unknown]
  - Hepatic steatosis [Unknown]
  - Osteosclerosis [Unknown]
